FAERS Safety Report 7884913-4 (Version None)
Quarter: 2011Q4

REPORT INFORMATION
  Report Type: 
  Country: None (occurrence: None)
  Receive Date: 20111102
  Receipt Date: 20111021
  Transmission Date: 20120403
  Serious: Yes (Hospitalization, Other)
  Sender: FDA-Public Use
  Company Number: US-BAYER-2011-050466

PATIENT
  Age: 30 Year
  Sex: Female
  Weight: 77 kg

DRUGS (5)
  1. ASCORBIC ACID [Concomitant]
     Dosage: 500 MG, DAILY
     Dates: start: 20090201
  2. NSAID'S [Concomitant]
     Dosage: UNK
  3. YAZ [Suspect]
     Dosage: UNK
     Dates: start: 20080101, end: 20090101
  4. MERIDIA [Concomitant]
     Dosage: 10MG/15MG
     Dates: start: 20090226, end: 20090624
  5. PREDNISOLONE [Concomitant]
     Dosage: 1 %, UNK
     Dates: start: 20090426, end: 20090504

REACTIONS (4)
  - INJURY [None]
  - CHOLECYSTITIS CHRONIC [None]
  - GALLBLADDER DISORDER [None]
  - PAIN [None]
